FAERS Safety Report 20382112 (Version 1)
Quarter: 2022Q1

REPORT INFORMATION
  Report Type: Spontaneous
  Country: US (occurrence: US)
  Receive Date: 20220127
  Receipt Date: 20220127
  Transmission Date: 20220423
  Serious: No
  Sender: FDA-Public Use
  Company Number: US-PCCINC-2021-PEL-000623

PATIENT

DRUGS (2)
  1. GABLOFEN [Suspect]
     Active Substance: BACLOFEN
     Indication: Muscle spasticity
     Dosage: UNK
     Route: 037
  2. DILAUDID [Suspect]
     Active Substance: HYDROMORPHONE HYDROCHLORIDE
     Indication: Muscle spasticity
     Dosage: UNK
     Route: 037

REACTIONS (5)
  - Purulent discharge [Unknown]
  - Drug ineffective [Not Recovered/Not Resolved]
  - Device inversion [Not Recovered/Not Resolved]
  - Device issue [Not Recovered/Not Resolved]
  - Implant site infection [Unknown]

NARRATIVE: CASE EVENT DATE: 20210801
